FAERS Safety Report 5422257-0 (Version None)
Quarter: 2007Q3

REPORT INFORMATION
  Report Type: 
  Country: None (occurrence: None)
  Receive Date: 20070822
  Receipt Date: 20070814
  Transmission Date: 20080115
  Serious: Yes (Death, Other)
  Sender: FDA-Public Use
  Company Number: GB-AVENTIS-200717535GDDC

PATIENT
  Age: 2 Hour

DRUGS (2)
  1. ARAVA [Suspect]
     Route: 065
     Dates: start: 20060406, end: 20060823
  2. PREDNISOLONE [Suspect]
     Route: 065
     Dates: start: 20040404

REACTIONS (2)
  - DRUG EXPOSURE DURING PREGNANCY [None]
  - PREMATURE BABY [None]
